FAERS Safety Report 9701169 (Version 1)
Quarter: 2013Q4

REPORT INFORMATION
  Report Type: Spontaneous
  Country: US (occurrence: US)
  Receive Date: 20131121
  Receipt Date: 20131121
  Transmission Date: 20140711
  Serious: No
  Sender: FDA-Public Use
  Company Number: US-GILEAD-2008-0015933

PATIENT
  Sex: Female
  Weight: 72.57 kg

DRUGS (13)
  1. LETAIRIS [Suspect]
     Indication: PULMONARY ARTERIAL HYPERTENSION
     Route: 048
     Dates: start: 20080315
  2. PROTONIX [Concomitant]
     Route: 048
  3. LASIX [Concomitant]
     Route: 048
  4. NORVASC [Concomitant]
     Route: 048
  5. REVATIO [Concomitant]
     Route: 048
  6. TRICOR [Concomitant]
     Route: 048
  7. LANTUS [Concomitant]
     Route: 058
  8. CARVEDILOL [Concomitant]
     Route: 048
  9. LISINOPRIL [Concomitant]
     Route: 048
  10. NOVOLOG [Concomitant]
     Dosage: SLIDING SCALE
     Route: 058
  11. SPIRIVA [Concomitant]
     Route: 055
  12. CALCIUM [Concomitant]
     Route: 048
  13. PLAVIX [Concomitant]
     Route: 048

REACTIONS (3)
  - Dizziness [Unknown]
  - Local swelling [Unknown]
  - Headache [Unknown]
